FAERS Safety Report 5627010-0 (Version None)
Quarter: 2008Q1

REPORT INFORMATION
  Report Type: 
  Country: None (occurrence: None)
  Receive Date: 20080117
  Receipt Date: 20071017
  Transmission Date: 20080703
  Serious: Yes (Hospitalization)
  Sender: FDA-Public Use
  Company Number: E2020-01753-SPO-US

PATIENT
  Age: 70 Year
  Sex: Female

DRUGS (1)
  1. ARICEPT [Suspect]
     Dosage: 5 MG, 1 IN 1 D, ORAL ; 50 MG, 1 IN 1 TOTAL, ORAL ; 5 MG, 1 IN 1 D, ORAL
     Route: 048

REACTIONS (3)
  - LETHARGY [None]
  - OVERDOSE [None]
  - VOMITING [None]
